FAERS Safety Report 23411215 (Version 1)
Quarter: 2024Q1

REPORT INFORMATION
  Report Type: Spontaneous
  Country: US (occurrence: US)
  Receive Date: 20240117
  Receipt Date: 20240117
  Transmission Date: 20240409
  Serious: No
  Sender: FDA-Public Use
  Company Number: US-FERRINGPH-2023FE02200

PATIENT
  Age: 72 Year
  Sex: Female
  Weight: 61.678 kg

DRUGS (2)
  1. CLENPIQ [Suspect]
     Active Substance: ANHYDROUS CITRIC ACID\MAGNESIUM OXIDE\SODIUM PICOSULFATE
     Indication: Bowel preparation
     Dosage: UNK
     Route: 065
     Dates: start: 20230502, end: 20230503
  2. TELMISARTAN [Concomitant]
     Active Substance: TELMISARTAN
     Indication: Blood pressure management
     Route: 065

REACTIONS (1)
  - Therapeutic product effect incomplete [Unknown]

NARRATIVE: CASE EVENT DATE: 20230502
